FAERS Safety Report 16655525 (Version 1)
Quarter: 2019Q3

REPORT INFORMATION
  Report Type: Spontaneous
  Country: US (occurrence: US)
  Receive Date: 20190801
  Receipt Date: 20190801
  Transmission Date: 20191004
  Serious: Yes (Other)
  Sender: FDA-Public Use
  Company Number: US-TEVA-2019-US-1084368

PATIENT
  Sex: Male

DRUGS (1)
  1. ATOMOXETINE HYDROCHLORIDE TEVA [Suspect]
     Active Substance: ATOMOXETINE HYDROCHLORIDE
     Route: 065

REACTIONS (1)
  - Intentional self-injury [Unknown]
